FAERS Safety Report 23346944 (Version 4)
Quarter: 2024Q2

REPORT INFORMATION
  Report Type: Spontaneous
  Country: US (occurrence: US)
  Receive Date: 20231228
  Receipt Date: 20240422
  Transmission Date: 20240716
  Serious: Yes (Other)
  Sender: FDA-Public Use
  Company Number: US-SA-SAC20231220000663

PATIENT
  Age: 64 Year
  Sex: Female

DRUGS (3)
  1. DUPIXENT [Suspect]
     Active Substance: DUPILUMAB
     Indication: Eczema
     Dosage: 300 MG, QOW
     Route: 058
     Dates: start: 2022, end: 202306
  2. DUPIXENT [Suspect]
     Active Substance: DUPILUMAB
     Indication: Dermatitis atopic
  3. ALBUTEROL [Concomitant]
     Active Substance: ALBUTEROL
     Dosage: UNK

REACTIONS (7)
  - Prosthetic cardiac valve failure [Unknown]
  - Cough [Not Recovered/Not Resolved]
  - Eczema [Recovering/Resolving]
  - Pruritus [Recovering/Resolving]
  - Erythema [Recovering/Resolving]
  - Dry skin [Recovering/Resolving]
  - Inappropriate schedule of product administration [Unknown]

NARRATIVE: CASE EVENT DATE: 20230101
